FAERS Safety Report 9208162 (Version 1)
Quarter: 2013Q2

REPORT INFORMATION
  Report Type: Spontaneous
  Country: IT (occurrence: IT)
  Receive Date: 20130403
  Receipt Date: 20130403
  Transmission Date: 20140414
  Serious: Yes (Other)
  Sender: FDA-Public Use
  Company Number: PHHY2013IT030064

PATIENT
  Sex: Female

DRUGS (9)
  1. MYCOPHENOLATE MOFETIL [Suspect]
     Indication: RENAL TRANSPLANT
     Dosage: 500 MG, QD
     Route: 048
     Dates: start: 20130308, end: 20130311
  2. DELTACORTENE [Concomitant]
  3. ADVAGRAF [Concomitant]
  4. PANTORC [Concomitant]
  5. SOTALEX [Concomitant]
  6. ADALAT [Concomitant]
  7. CATAPRESAN [Concomitant]
  8. NOVONORM [Concomitant]
  9. ESAPENT [Concomitant]

REACTIONS (4)
  - Haematuria [Recovering/Resolving]
  - Pollakiuria [Recovering/Resolving]
  - Nausea [Recovering/Resolving]
  - Vomiting [Recovering/Resolving]
